FAERS Safety Report 19693651 (Version 1)
Quarter: 2021Q3

REPORT INFORMATION
  Report Type: Spontaneous
  Country: US (occurrence: US)
  Receive Date: 20210812
  Receipt Date: 20210812
  Transmission Date: 20211014
  Serious: No
  Sender: FDA-Public Use
  Company Number: US-SA-2021SA264151

PATIENT
  Age: 25 Year
  Sex: Female

DRUGS (1)
  1. DUPIXENT [Suspect]
     Active Substance: DUPILUMAB
     Indication: IDIOPATHIC URTICARIA
     Dosage: 300 MG, QOW
     Route: 058
     Dates: start: 20201111

REACTIONS (5)
  - Dyspnoea [Unknown]
  - Product use in unapproved indication [Unknown]
  - Rash [Unknown]
  - Vomiting [Unknown]
  - Adverse food reaction [Unknown]

NARRATIVE: CASE EVENT DATE: 20201111
